FAERS Safety Report 19370922 (Version 1)
Quarter: 2021Q2

REPORT INFORMATION
  Report Type: Spontaneous
  Country: US (occurrence: US)
  Receive Date: 20210604
  Receipt Date: 20210604
  Transmission Date: 20210717
  Serious: Yes (Death)
  Sender: FDA-Public Use
  Company Number: US-TECHDOW-2021TECHDOW000590

PATIENT
  Age: 80 Year
  Sex: Male

DRUGS (1)
  1. HEPARIN SODIUM INJECTION, USP (PRESERVATIVE FREE) [Suspect]
     Active Substance: HEPARIN SODIUM
     Indication: PULMONARY EMBOLISM

REACTIONS (3)
  - Renal impairment [Fatal]
  - Pneumonia cytomegaloviral [Fatal]
  - Hypoxia [Fatal]
